FAERS Safety Report 24174891 (Version 1)
Quarter: 2024Q3

REPORT INFORMATION
  Report Type: Report from Study
  Country: CA (occurrence: CA)
  Receive Date: 20240805
  Receipt Date: 20240805
  Transmission Date: 20241017
  Serious: Yes (Other)
  Sender: COVIS PHARMA
  Company Number: CA-AstraZeneca-2020SE00326

PATIENT
  Age: 59 Year
  Sex: Female

DRUGS (2)
  1. ALVESCO [Suspect]
     Active Substance: CICLESONIDE
     Indication: Pulmonary congestion
     Route: 055
  2. MEPOLIZUMAB [Suspect]
     Active Substance: MEPOLIZUMAB
     Indication: Asthma
     Route: 042

REACTIONS (4)
  - Thyroid mass [Unknown]
  - Increased bronchial secretion [Unknown]
  - Nasal congestion [Unknown]
  - Pulmonary congestion [Unknown]
